FAERS Safety Report 18846106 (Version 1)
Quarter: 2021Q1

REPORT INFORMATION
  Report Type: Spontaneous
  Country: US (occurrence: US)
  Receive Date: 20210204
  Receipt Date: 20210204
  Transmission Date: 20210419
  Serious: No
  Sender: FDA-Public Use
  Company Number: US-PFIZER INC-2021092362

PATIENT
  Age: 63 Year
  Sex: Female
  Weight: 63.9 kg

DRUGS (2)
  1. XELJANZ [Suspect]
     Active Substance: TOFACITINIB CITRATE
     Indication: RHEUMATOID ARTHRITIS
     Dosage: 5 MG, 2X/DAY (IN THE MORNING AND BEDTIME)
     Route: 048
  2. XELJANZ [Suspect]
     Active Substance: TOFACITINIB CITRATE
     Dosage: 5 MG, DAILY (SHE TAKES ONE TABLET DAILY, INSTEAD OF TAKING TWO TABLETS DAILY)

REACTIONS (3)
  - Condition aggravated [Unknown]
  - Stress [Not Recovered/Not Resolved]
  - Intentional product misuse [Unknown]
